FAERS Safety Report 9977443 (Version 1)
Quarter: 2014Q1

REPORT INFORMATION
  Report Type: Spontaneous
  Country: US (occurrence: US)
  Receive Date: 20140306
  Receipt Date: 20140306
  Transmission Date: 20141002
  Serious: Yes (Other)
  Sender: FDA-Public Use
  Company Number: US-ABBVIE-13P-163-1162625-00

PATIENT
  Sex: Female
  Weight: 94.89 kg

DRUGS (6)
  1. HUMIRA [Suspect]
     Indication: RHEUMATOID ARTHRITIS
     Route: 058
     Dates: start: 2009
  2. HUMIRA [Suspect]
     Dates: start: 201307
  3. TYLENOL #3 [Concomitant]
     Indication: BACK PAIN
  4. IBUPROFEN [Concomitant]
     Indication: ARTHRITIS
  5. IBUPROFEN [Concomitant]
     Indication: MUSCLE STRAIN
  6. IBUPROFEN [Concomitant]
     Indication: MYALGIA

REACTIONS (10)
  - Foot fracture [Unknown]
  - Liver function test abnormal [Recovered/Resolved]
  - Tooth fracture [Not Recovered/Not Resolved]
  - Muscular weakness [Recovered/Resolved]
  - Tremor [Recovered/Resolved]
  - Local swelling [Recovered/Resolved]
  - Oedema mouth [Recovered/Resolved]
  - Blood potassium decreased [Recovering/Resolving]
  - Multiple fractures [Recovering/Resolving]
  - Blood calcium abnormal [Unknown]
